FAERS Safety Report 9231991 (Version 2)
Quarter: 2013Q2

REPORT INFORMATION
  Report Type: Spontaneous
  Country: US (occurrence: US)
  Receive Date: 20130415
  Receipt Date: 20130418
  Transmission Date: 20140414
  Serious: No
  Sender: FDA-Public Use
  Company Number: US-009507513-1304USA005510

PATIENT
  Sex: 0

DRUGS (1)
  1. PEGINTRON [Suspect]
     Indication: PROPHYLAXIS
     Dosage: UNK
     Dates: start: 20130410

REACTIONS (4)
  - Wrong technique in drug usage process [Unknown]
  - Drug dose omission [Unknown]
  - Product quality issue [Unknown]
  - No adverse event [Unknown]
